FAERS Safety Report 16181204 (Version 2)
Quarter: 2019Q2

REPORT INFORMATION
  Report Type: Spontaneous
  Country: DE (occurrence: DE)
  Receive Date: 20190410
  Receipt Date: 20190610
  Transmission Date: 20190711
  Serious: Yes (Death, Hospitalization, Other)
  Sender: FDA-Public Use
  Company Number: DE-ELI_LILLY_AND_COMPANY-DE201904004150

PATIENT
  Sex: Male

DRUGS (6)
  1. PEMETREXED. [Suspect]
     Active Substance: PEMETREXED
     Indication: NON-SMALL CELL LUNG CANCER
  2. PEMETREXED. [Suspect]
     Active Substance: PEMETREXED
     Indication: LUNG ADENOCARCINOMA
     Dosage: UNK UNK, CYCLICAL
     Route: 065
     Dates: start: 201811, end: 20190304
  3. KEYTRUDA [Suspect]
     Active Substance: PEMBROLIZUMAB
     Indication: NON-SMALL CELL LUNG CANCER
  4. CARBOPLATIN. [Suspect]
     Active Substance: CARBOPLATIN
     Indication: NON-SMALL CELL LUNG CANCER
  5. CARBOPLATIN. [Suspect]
     Active Substance: CARBOPLATIN
     Indication: LUNG ADENOCARCINOMA
     Dosage: UNK UNK, CYCLICAL
     Route: 065
     Dates: start: 201811
  6. KEYTRUDA [Suspect]
     Active Substance: PEMBROLIZUMAB
     Indication: LUNG ADENOCARCINOMA
     Dosage: 200 MILLIGRAM, CYCLICAL,CEIVED 4 CYCLES WITH COMBINATION OF PEMBROLIZUMAB(KEYTRUDA), CARBOPLATIN AND
     Route: 065
     Dates: start: 201811, end: 20190304

REACTIONS (10)
  - Staphylococcus test positive [Unknown]
  - Off label use [Unknown]
  - Subendocardial ischaemia [Fatal]
  - Arteriosclerosis [Fatal]
  - Idiopathic pulmonary fibrosis [Fatal]
  - Pyrexia [Not Recovered/Not Resolved]
  - Brain oedema [Fatal]
  - Malignant neoplasm progression [Fatal]
  - Cerebral artery thrombosis [Fatal]
  - Interstitial lung disease [Not Recovered/Not Resolved]

NARRATIVE: CASE EVENT DATE: 201903
